FAERS Safety Report 9440186 (Version 1)
Quarter: 2013Q3

REPORT INFORMATION
  Report Type: Report from Study
  Country: AR (occurrence: AR)
  Receive Date: 20130805
  Receipt Date: 20130805
  Transmission Date: 20140515
  Serious: Yes (Hospitalization)
  Sender: FDA-Public Use
  Company Number: PHHY2013AR082921

PATIENT
  Age: 80 Year
  Sex: Female

DRUGS (2)
  1. ACLASTA [Suspect]
     Indication: BLOOD CALCIUM ABNORMAL
     Dosage: ONE AMPOULE ANNUALLY
     Route: 042
  2. ACLASTA [Suspect]
     Dosage: ONE AMPOULE ANNUALLY
     Route: 042
     Dates: start: 20120705

REACTIONS (1)
  - Pneumonia [Recovering/Resolving]
